FAERS Safety Report 14709585 (Version 1)
Quarter: 2018Q1

REPORT INFORMATION
  Report Type: Spontaneous
  Country: US (occurrence: US)
  Receive Date: 20180329
  Receipt Date: 20180329
  Transmission Date: 20180509
  Serious: No
  Sender: FDA-Public Use
  Company Number: None

PATIENT
  Age: 60 Year
  Sex: Male

DRUGS (1)
  1. IMATINIB MES TAB 100MG [Suspect]
     Active Substance: IMATINIB MESYLATE
     Route: 048

REACTIONS (4)
  - Malaise [None]
  - Incorrect dose administered [None]
  - Nausea [None]
  - Drug dispensing error [None]

NARRATIVE: CASE EVENT DATE: 20171012
